FAERS Safety Report 9181366 (Version 2)
Quarter: 2013Q2

REPORT INFORMATION
  Report Type: Spontaneous
  Country: AU (occurrence: AU)
  Receive Date: 20130322
  Receipt Date: 20130402
  Transmission Date: 20140414
  Serious: Yes (Other)
  Sender: FDA-Public Use
  Company Number: AU-AMGEN-AUSSP2013016006

PATIENT
  Age: 70 Year
  Sex: Female

DRUGS (4)
  1. PROLIA [Suspect]
     Indication: OSTEOPOROSIS POSTMENOPAUSAL
     Dosage: UNK
     Dates: start: 2012
  2. METHOBLASTIN                       /00113801/ [Concomitant]
  3. PLAQUENIL                          /00072602/ [Concomitant]
  4. ANTIBIOTICS [Concomitant]

REACTIONS (3)
  - Breast abscess [Recovered/Resolved]
  - Bone pain [Recovered/Resolved]
  - Feeling abnormal [Recovered/Resolved]
